FAERS Safety Report 9380691 (Version 1)
Quarter: 2013Q3

REPORT INFORMATION
  Report Type: Spontaneous
  Country: FR (occurrence: FR)
  Receive Date: 20130702
  Receipt Date: 20130702
  Transmission Date: 20140515
  Serious: Yes (Life-Threatening)
  Sender: FDA-Public Use
  Company Number: FR-BAXTER-2013BAX024394

PATIENT
  Age: 42 Year
  Sex: Female

DRUGS (17)
  1. SEVOFLURANE BAXTER 1 ML/ML, LIQUIDE POUR INHALATION PAR VAPEUR [Suspect]
     Indication: MAINTENANCE OF ANAESTHESIA
     Route: 055
     Dates: start: 20121112, end: 20121112
  2. RINGER LACTATE BAXTER, SOLUTION POUR PERFUSION [Suspect]
     Indication: PRODUCT USED FOR UNKNOWN INDICATION
     Route: 065
  3. HEPARIN SODIUM [Suspect]
     Indication: PRODUCT USED FOR UNKNOWN INDICATION
     Route: 042
     Dates: start: 20121112
  4. HEPARIN SODIUM [Suspect]
     Route: 042
     Dates: start: 20121112
  5. HEPARIN SODIUM [Suspect]
     Route: 042
     Dates: start: 20121029
  6. NIMBEX [Suspect]
     Indication: INDUCTION OF ANAESTHESIA
     Route: 042
     Dates: start: 20121112, end: 20121112
  7. NIMBEX [Suspect]
     Indication: MAINTENANCE OF ANAESTHESIA
  8. ETOMIDATE [Suspect]
     Indication: INDUCTION OF ANAESTHESIA
     Route: 042
     Dates: end: 20121112
  9. SUFENTANIL MERCK [Suspect]
     Indication: INDUCTION OF ANAESTHESIA
     Route: 042
     Dates: start: 20121112, end: 20121112
  10. SUFENTANIL MERCK [Suspect]
     Indication: MAINTENANCE OF ANAESTHESIA
  11. VANCOMYCINE MYLAN [Suspect]
     Indication: ANTIBIOTIC PROPHYLAXIS
     Route: 042
     Dates: start: 20121112, end: 20121112
  12. PYSIOLOGICAL SERUM [Suspect]
     Indication: PRODUCT USED FOR UNKNOWN INDICATION
     Route: 065
  13. VOLUVEN [Suspect]
     Indication: PRODUCT USED FOR UNKNOWN INDICATION
     Dosage: 1 VIAL
     Route: 065
  14. MAGNESIUM [Suspect]
     Indication: PRODUCT USED FOR UNKNOWN INDICATION
     Route: 065
  15. CALCIUM [Suspect]
     Indication: PRODUCT USED FOR UNKNOWN INDICATION
     Route: 065
  16. PROTAMINE [Suspect]
     Indication: PRODUCT USED FOR UNKNOWN INDICATION
     Route: 065
  17. NICOPATCH [Concomitant]
     Indication: PRODUCT USED FOR UNKNOWN INDICATION
     Route: 061

REACTIONS (10)
  - Systemic inflammatory response syndrome [Recovered/Resolved with Sequelae]
  - Hyperthermia [Recovered/Resolved]
  - Renal failure acute [Recovered/Resolved]
  - Hypotension [Recovered/Resolved]
  - Pleural effusion [Recovered/Resolved with Sequelae]
  - Atrial fibrillation [Unknown]
  - Haemophilus infection [Recovered/Resolved]
  - Mediastinal haematoma [Unknown]
  - Pericardial haemorrhage [Unknown]
  - Oxygen saturation decreased [Unknown]
